FAERS Safety Report 23991060 (Version 1)
Quarter: 2024Q2

REPORT INFORMATION
  Report Type: Spontaneous
  Country: US (occurrence: US)
  Receive Date: 20240619
  Receipt Date: 20240619
  Transmission Date: 20240716
  Serious: No
  Sender: FDA-Public Use
  Company Number: US-PHARMALEX-2024000398

PATIENT
  Age: 43 Year
  Sex: Male

DRUGS (6)
  1. LIDOCAINE [Suspect]
     Active Substance: LIDOCAINE
     Indication: Arachnoiditis
     Dosage: UNK
  2. ACETAMINOPHEN [Concomitant]
     Active Substance: ACETAMINOPHEN
     Indication: Arachnoiditis
     Dosage: 1000 MILLIGRAM, 4/DAY
  3. CELECOXIB [Concomitant]
     Active Substance: CELECOXIB
     Indication: Arachnoiditis
     Dosage: 200 MILLIGRAM, 1/DAY
  4. PREGABALIN [Concomitant]
     Active Substance: PREGABALIN
     Indication: Arachnoiditis
     Dosage: 300 MILLIGRAM, 2/DAY
  5. HYDROMORPHONE [Concomitant]
     Active Substance: HYDROMORPHONE
     Indication: Arachnoiditis
     Dosage: 4 MILLIGRAM, AS NEEDED
  6. PREDNISONE ACETATE [Concomitant]
     Active Substance: PREDNISONE ACETATE
     Indication: Product used for unknown indication
     Dosage: 60 MILLIGRAM, 1/DAY

REACTIONS (1)
  - Drug ineffective [Unknown]
